FAERS Safety Report 9261411 (Version 1)
Quarter: 2013Q2

REPORT INFORMATION
  Report Type: Spontaneous
  Country: FR (occurrence: FR)
  Receive Date: 20130429
  Receipt Date: 20130429
  Transmission Date: 20140414
  Serious: Yes (Death, Hospitalization, Other)
  Sender: FDA-Public Use
  Company Number: FR-BRISTOL-MYERS SQUIBB COMPANY-18807651

PATIENT
  Age: 77 Year
  Sex: Male

DRUGS (2)
  1. COUMADINE [Suspect]
     Indication: ATRIAL FIBRILLATION
     Dates: end: 20130129
  2. KARDEGIC [Suspect]
     Route: 048
     Dates: start: 20130109, end: 20130129

REACTIONS (2)
  - Haemorrhagic stroke [Fatal]
  - Fall [Unknown]
